FAERS Safety Report 8552975-7 (Version None)
Quarter: 2012Q3

REPORT INFORMATION
  Report Type: 
  Country: None (occurrence: None)
  Receive Date: 20120731
  Receipt Date: 20120723
  Transmission Date: 20120928
  Serious: Yes (Other)
  Sender: FDA-Public Use
  Company Number: US-ASTELLAS-2012US006401

PATIENT

DRUGS (1)
  1. PROGRAF [Suspect]
     Indication: RENAL TRANSPLANT
     Dosage: 5 MG IN THE MORNING AND 6 IN THE EVENING
     Route: 048
     Dates: start: 20090625

REACTIONS (2)
  - ROAD TRAFFIC ACCIDENT [None]
  - MALAISE [None]
